FAERS Safety Report 24133928 (Version 5)
Quarter: 2024Q3

REPORT INFORMATION
  Report Type: Spontaneous
  Country: US (occurrence: US)
  Receive Date: 20240724
  Receipt Date: 20240828
  Transmission Date: 20241016
  Serious: No
  Sender: SANOFI AVENTIS
  Company Number: US-SANOFI-02139689

PATIENT
  Age: 75 Year
  Sex: Female

DRUGS (1)
  1. TOUJEO [Suspect]
     Active Substance: INSULIN GLARGINE
     Indication: Type 2 diabetes mellitus
     Dosage: 58 IU, QD
     Route: 065

REACTIONS (5)
  - Feeling abnormal [Unknown]
  - Incorrect dose administered [Unknown]
  - Device mechanical issue [Unknown]
  - Lethargy [Unknown]
  - Hypertension [Unknown]

NARRATIVE: CASE EVENT DATE: 20240715
